FAERS Safety Report 20578062 (Version 1)
Quarter: 2022Q1

REPORT INFORMATION
  Report Type: Spontaneous
  Country: US (occurrence: US)
  Receive Date: 20220310
  Receipt Date: 20220310
  Transmission Date: 20220424
  Serious: No
  Sender: FDA-Public Use
  Company Number: US-Horizon-2021HZN00448

PATIENT
  Sex: Female

DRUGS (2)
  1. PENNSAID [Suspect]
     Active Substance: DICLOFENAC SODIUM
     Indication: Arthritis
     Dosage: 3-4 TIMES A WEEK WHEN IT HURTS
     Route: 065
     Dates: start: 2019
  2. PENNSAID [Suspect]
     Active Substance: DICLOFENAC SODIUM
     Indication: Back pain

REACTIONS (2)
  - Off label use [Unknown]
  - Off label use [Not Recovered/Not Resolved]
